FAERS Safety Report 6934305-7 (Version None)
Quarter: 2010Q3

REPORT INFORMATION
  Report Type: 
  Country: None (occurrence: None)
  Receive Date: 20100820
  Receipt Date: 20100809
  Transmission Date: 20110219
  Serious: Yes (Hospitalization)
  Sender: FDA-Public Use
  Company Number: A0833437A

PATIENT
  Sex: Male
  Weight: 106.4 kg

DRUGS (7)
  1. AVANDIA [Suspect]
     Dosage: 4MG PER DAY
     Route: 048
     Dates: start: 20050801, end: 20080101
  2. GLUCOPHAGE [Concomitant]
  3. GLUCOTROL [Concomitant]
  4. INSULIN [Concomitant]
  5. LIPITOR [Concomitant]
  6. ACCUPRIL [Concomitant]
  7. CIALIS [Concomitant]

REACTIONS (6)
  - ANGINA PECTORIS [None]
  - CARDIAC DISORDER [None]
  - CEREBROVASCULAR ACCIDENT [None]
  - DEVICE OCCLUSION [None]
  - THROMBOSIS [None]
  - TRANSIENT ISCHAEMIC ATTACK [None]
